FAERS Safety Report 11825377 (Version 1)
Quarter: 2015Q4

REPORT INFORMATION
  Report Type: Other
  Country: US (occurrence: US)
  Receive Date: 20151211
  Receipt Date: 20151211
  Transmission Date: 20160305
  Serious: Yes (Other)
  Sender: FDA-Public Use
  Company Number: US-SHIRE-US201515726

PATIENT
  Sex: Female
  Weight: 100 kg

DRUGS (10)
  1. ADDERALL [Concomitant]
     Active Substance: AMPHETAMINE ASPARTATE\AMPHETAMINE SULFATE\DEXTROAMPHETAMINE SACCHARATE\DEXTROAMPHETAMINE SULFATE
     Indication: ATTENTION DEFICIT/HYPERACTIVITY DISORDER
     Dosage: UNK, 2X/DAY:BID
     Route: 065
     Dates: start: 2015, end: 2015
  2. VYVANSE [Suspect]
     Active Substance: LISDEXAMFETAMINE DIMESYLATE
     Dosage: 30 MG, 1X/DAY:QD
     Route: 048
     Dates: start: 201510
  3. TOPAMAX [Suspect]
     Active Substance: TOPIRAMATE
     Dosage: 25 MG, 1X/DAY:QD
     Route: 048
     Dates: start: 2015
  4. VYVANSE [Suspect]
     Active Substance: LISDEXAMFETAMINE DIMESYLATE
     Indication: ATTENTION DEFICIT/HYPERACTIVITY DISORDER
     Dosage: 40 MG, 1X/DAY:QD
     Route: 048
     Dates: start: 201210, end: 2015
  5. TOPAMAX [Suspect]
     Active Substance: TOPIRAMATE
     Indication: HEADACHE
     Dosage: 50 MG, 1X/DAY:QD (25 MG TABLET, TWO ONCE DAILY)
     Route: 048
     Dates: start: 201510, end: 2015
  6. VYVANSE [Suspect]
     Active Substance: LISDEXAMFETAMINE DIMESYLATE
     Dosage: 40 MG, 1X/DAY:QD
     Route: 048
     Dates: start: 2015, end: 201510
  7. MUCINEX [Suspect]
     Active Substance: GUAIFENESIN
     Indication: NASOPHARYNGITIS
     Dosage: UNK, UNKNOWN
     Route: 065
     Dates: start: 201511, end: 201511
  8. TOPAMAX [Suspect]
     Active Substance: TOPIRAMATE
     Indication: MIGRAINE
     Dosage: 25 MG, 1X/DAY:QD
     Route: 048
     Dates: start: 2015, end: 201510
  9. RITALIN [Suspect]
     Active Substance: METHYLPHENIDATE HYDROCHLORIDE
     Indication: ATTENTION DEFICIT/HYPERACTIVITY DISORDER
     Dosage: 10 MG, 4X/DAY:QID
     Route: 065
     Dates: start: 2015, end: 2015
  10. VYVANSE [Suspect]
     Active Substance: LISDEXAMFETAMINE DIMESYLATE
     Dosage: 30 MG, 1X/DAY:QD
     Route: 048
     Dates: end: 201210

REACTIONS (22)
  - Eye irritation [Recovered/Resolved]
  - Social phobia [Recovered/Resolved]
  - Malaise [Unknown]
  - Fatigue [Unknown]
  - Anaphylactic reaction [Recovered/Resolved]
  - Headache [Not Recovered/Not Resolved]
  - Anxiety [Recovered/Resolved]
  - Affect lability [Recovered/Resolved]
  - Drug effect decreased [Recovered/Resolved]
  - Drug dose omission [Recovered/Resolved]
  - Bipolar disorder [Recovered/Resolved]
  - Anger [Recovered/Resolved]
  - Weight increased [Recovered/Resolved]
  - Hypersomnia [Recovered/Resolved]
  - Nasopharyngitis [Recovered/Resolved]
  - Tachyphrenia [Recovered/Resolved]
  - Fear [Recovered/Resolved]
  - Apathy [Recovered/Resolved]
  - Drug ineffective [Recovered/Resolved]
  - Drug effect increased [Recovered/Resolved]
  - Depression [Recovered/Resolved]
  - Migraine [Not Recovered/Not Resolved]

NARRATIVE: CASE EVENT DATE: 2015
